FAERS Safety Report 8871706 (Version 1)
Quarter: 2012Q4

REPORT INFORMATION
  Report Type: 
  Country: US (occurrence: US)
  Receive Date: 20121023
  Receipt Date: 20121023
  Transmission Date: 20130627
  Serious: No
  Sender: FDA-Public Use
  Company Number: US-ASTELLAS-2012US006152

PATIENT

DRUGS (12)
  1. PROGRAF [Suspect]
     Indication: LIVER TRANSPLANT
     Dosage: 3 mg, UID/QD
     Route: 048
     Dates: start: 20040909
  2. PROGRAF [Suspect]
     Dosage: 2.5 mg, UID/QD
     Route: 048
  3. VIREAD [Concomitant]
     Indication: HEPATITIS B
     Dosage: 300 mg, UID/QD
     Route: 048
  4. PEPCID                             /00706001/ [Concomitant]
     Indication: ULCER
     Dosage: 40 mg, bid
     Route: 048
  5. MG-PLUS-PROTEIN [Concomitant]
     Indication: SUPPLEMENTATION THERAPY
     Dosage: 798 mg, UID/QD
     Route: 048
  6. LORAZEPAM [Concomitant]
     Indication: PAIN
     Dosage: UNK
     Route: 048
  7. HYDROCORTISONE [Concomitant]
     Indication: PAIN
     Dosage: UNK
     Route: 065
  8. UNI PLEX [Concomitant]
     Indication: SUPPLEMENTATION THERAPY
     Dosage: 1 DF, UID/QD
     Route: 065
  9. MULTIVITAMINS [Concomitant]
     Indication: SUPPLEMENTATION THERAPY
     Dosage: UNK
     Route: 065
  10. HYDROCODONE [Concomitant]
     Indication: PRODUCT USED FOR UNKNOWN INDICATION
     Dosage: 10/325
     Route: 065
  11. CYCLOBENZAPRINE [Concomitant]
     Indication: PRODUCT USED FOR UNKNOWN INDICATION
     Dosage: 10 mg, prn
     Route: 065
  12. DIAZEPAM [Concomitant]
     Indication: PRODUCT USED FOR UNKNOWN INDICATION
     Dosage: 10 mg, Unknown/D
     Route: 065

REACTIONS (3)
  - Cartilage injury [Unknown]
  - Tremor [Unknown]
  - Insomnia [Unknown]
